FAERS Safety Report 25416695 (Version 1)
Quarter: 2025Q2

REPORT INFORMATION
  Report Type: Report from Study
  Country: CA (occurrence: CA)
  Receive Date: 20250610
  Receipt Date: 20250610
  Transmission Date: 20250716
  Serious: Yes (Disabling, Other)
  Sender: GILEAD
  Company Number: CA-GILEAD-2025-0715852

PATIENT
  Age: 54 Year
  Sex: Male

DRUGS (3)
  1. BICTEGRAVIR\EMTRICITABINE\TENOFOVIR ALAFENAMIDE [Suspect]
     Active Substance: BICTEGRAVIR\EMTRICITABINE\TENOFOVIR ALAFENAMIDE
     Indication: HIV infection
     Dosage: 1 TAB ONCE A DAY
     Route: 065
     Dates: start: 2023
  2. VYVANSE [Concomitant]
     Active Substance: LISDEXAMFETAMINE DIMESYLATE
     Dates: start: 202411, end: 202411
  3. VYVANSE [Concomitant]
     Active Substance: LISDEXAMFETAMINE DIMESYLATE
     Dates: start: 202411, end: 202411

REACTIONS (8)
  - Anxiety [Recovering/Resolving]
  - Bipolar disorder [Recovering/Resolving]
  - Intentional self-injury [Unknown]
  - Mania [Unknown]
  - Post-traumatic stress disorder [Recovering/Resolving]
  - Attention deficit hyperactivity disorder [Unknown]
  - Feeling abnormal [Unknown]
  - Condition aggravated [Unknown]

NARRATIVE: CASE EVENT DATE: 20241101
